FAERS Safety Report 6347926-X (Version None)
Quarter: 2009Q3

REPORT INFORMATION
  Report Type: 
  Country: None (occurrence: None)
  Receive Date: 20090910
  Receipt Date: 20090830
  Transmission Date: 20100115
  Serious: Yes (Hospitalization)
  Sender: FDA-Public Use
  Company Number: PHEH2009US09711

PATIENT
  Sex: Female
  Weight: 68.481 kg

DRUGS (19)
  1. RECLAST [Suspect]
     Indication: OSTEOPOROSIS
     Dosage: 5 MG
     Dates: start: 20090626
  2. CRESTOR [Concomitant]
  3. AMITRIPTYLINE [Concomitant]
     Dosage: 50 MG, QHS
     Route: 048
  4. METOPROLOL TARTRATE [Concomitant]
  5. GLIMEPIRIDE [Concomitant]
     Dosage: 1 MG, QD
     Route: 048
  6. AVAPRO [Concomitant]
     Indication: BLOOD PRESSURE
     Dosage: 300 MG, QD
     Route: 048
  7. MAGNESIUM [Concomitant]
     Route: 048
  8. PRILOSEC [Concomitant]
     Indication: GASTROOESOPHAGEAL REFLUX DISEASE
     Dosage: 20 MG, QD
     Route: 048
  9. INSULIN [Concomitant]
  10. METFORMIN HCL [Concomitant]
     Dosage: 1000 MG, BID
     Route: 048
  11. PLAVIX [Concomitant]
     Dosage: 75 MG, QD
     Route: 048
  12. HYDROCHLOROTHIAZIDE [Concomitant]
     Indication: BLOOD PRESSURE
     Dosage: 25 MG, AS DIRECTED
     Route: 048
  13. MAG-OX [Concomitant]
     Dosage: 400 MG, TID
     Route: 048
  14. CALCIUM W/VITAMIN D NOS [Concomitant]
     Dosage: 200MG-400MG 1 PO QD
     Route: 048
  15. METOPROLOL TARTRATE [Concomitant]
     Dosage: 50 MG, BID
     Route: 048
  16. REGLAN [Concomitant]
     Dosage: 10 MG, 2 PO Q 4-6 H PRN NAUSEA
     Route: 048
  17. TRILPILIX [Concomitant]
     Dosage: 135 MG, QD
     Route: 048
  18. XANAX [Concomitant]
     Dosage: 0.25 MG, TID PRN ANXIETY
     Route: 048
  19. JANUVIA [Concomitant]
     Dosage: 100 MG, 1 PO AS DIRECTED
     Route: 048

REACTIONS (16)
  - APHASIA [None]
  - ASTHENIA [None]
  - CONFUSIONAL STATE [None]
  - DIARRHOEA [None]
  - DYSPNOEA [None]
  - ENDOTRACHEAL INTUBATION [None]
  - FLUID OVERLOAD [None]
  - HYPERGLYCAEMIA [None]
  - HYPOVENTILATION [None]
  - HYPOXIA [None]
  - MECHANICAL VENTILATION [None]
  - MENTAL STATUS CHANGES [None]
  - OXYGEN SATURATION DECREASED [None]
  - PNEUMONIA [None]
  - PULMONARY OEDEMA [None]
  - TACHYARRHYTHMIA [None]
